FAERS Safety Report 6060194-1 (Version None)
Quarter: 2009Q1

REPORT INFORMATION
  Report Type: 
  Country: None (occurrence: None)
  Receive Date: 20090128
  Receipt Date: 20090116
  Transmission Date: 20090719
  Serious: No
  Sender: FDA-Public Use
  Company Number: 232855K08USA

PATIENT
  Age: 35 Year
  Sex: Female

DRUGS (3)
  1. REBIF [Suspect]
     Indication: MULTIPLE SCLEROSIS
     Dosage: 44 MCG, 3 IN 1 WEEKS, SUBCUTANEOUS
     Route: 058
     Dates: start: 20081015
  2. PROZAC [Concomitant]
  3. TRAMADOL HCL [Concomitant]

REACTIONS (14)
  - ABDOMINAL DISTENSION [None]
  - AREFLEXIA [None]
  - CENTRAL NERVOUS SYSTEM LESION [None]
  - COMPLEX PARTIAL SEIZURES [None]
  - DEMYELINATION [None]
  - DYSPEPSIA [None]
  - DYSURIA [None]
  - EYE DISORDER [None]
  - EYE PAIN [None]
  - PANIC ATTACK [None]
  - PNEUMONIA [None]
  - REFLEX TEST ABNORMAL [None]
  - SENSORY DISTURBANCE [None]
  - STRESS URINARY INCONTINENCE [None]
